FAERS Safety Report 6312645-2 (Version None)
Quarter: 2009Q3

REPORT INFORMATION
  Report Type: 
  Country: None (occurrence: None)
  Receive Date: 20090818
  Receipt Date: 20090807
  Transmission Date: 20100115
  Serious: Yes (Hospitalization, Other)
  Sender: FDA-Public Use
  Company Number: US-BIOGENIDEC-2007BI007694

PATIENT
  Age: 36 Year
  Sex: Male

DRUGS (4)
  1. TYSABRI [Suspect]
     Indication: MULTIPLE SCLEROSIS
     Route: 042
     Dates: start: 20070207, end: 20081124
  2. TYSABRI [Suspect]
     Route: 042
     Dates: start: 20090611
  3. KEPPRA [Concomitant]
     Indication: CONVULSION
     Dates: start: 20051001
  4. NEURONTIN [Concomitant]
     Indication: CONVULSION
     Dates: start: 20051001

REACTIONS (14)
  - CEREBROVASCULAR ACCIDENT [None]
  - COGNITIVE DISORDER [None]
  - CONVULSION [None]
  - DRUG SPECIFIC ANTIBODY PRESENT [None]
  - DYSARTHRIA [None]
  - FATIGUE [None]
  - GAIT DISTURBANCE [None]
  - INFLUENZA LIKE ILLNESS [None]
  - LIMB INJURY [None]
  - MEMORY IMPAIRMENT [None]
  - MUSCULAR WEAKNESS [None]
  - REMOVAL OF INTERNAL FIXATION [None]
  - VISION BLURRED [None]
  - VOMITING [None]
